FAERS Safety Report 6656471-3 (Version None)
Quarter: 2010Q1

REPORT INFORMATION
  Report Type: 
  Country: None (occurrence: None)
  Receive Date: 20100329
  Receipt Date: 20100317
  Transmission Date: 20100710
  Serious: Yes (Other)
  Sender: FDA-Public Use
  Company Number: AU-PFIZER INC-2010033944

PATIENT
  Sex: Male

DRUGS (2)
  1. ZOLOFT [Suspect]
  2. ALCOHOL [Interacting]

REACTIONS (2)
  - ALCOHOL INTERACTION [None]
  - SEXUAL ABUSE [None]
